FAERS Safety Report 7392176-1 (Version None)
Quarter: 2011Q2

REPORT INFORMATION
  Report Type: 
  Country: None (occurrence: None)
  Receive Date: 20110404
  Receipt Date: 20110325
  Transmission Date: 20111010
  Serious: Yes (Life-Threatening, Hospitalization)
  Sender: FDA-Public Use
  Company Number: B0695391A

PATIENT
  Age: 80 Year
  Sex: Male
  Weight: 98 kg

DRUGS (4)
  1. AVANDIA [Suspect]
     Dosage: 1TAB PER DAY
     Route: 065
     Dates: start: 20070705, end: 20100304
  2. GLUCOPHAGE [Suspect]
     Dates: start: 20000101
  3. ZOCOR [Concomitant]
     Dates: start: 20050801, end: 20100801
  4. CAPOTEN [Concomitant]
     Dates: start: 20100801, end: 20100801

REACTIONS (3)
  - MYOCARDIAL INFARCTION [None]
  - ANGINA PECTORIS [None]
  - CORONARY ARTERY BYPASS [None]
